FAERS Safety Report 11198516 (Version 2)
Quarter: 2015Q3

REPORT INFORMATION
  Report Type: Spontaneous
  Country: US (occurrence: None)
  Receive Date: 20150616
  Receipt Date: 20150818
  Transmission Date: 20151125
  Serious: Yes (Hospitalization, Other)
  Sender: FDA-Public Use
  Company Number: DEP_03021_2015

PATIENT
  Sex: Male
  Weight: 92.53 kg

DRUGS (10)
  1. GRALISE [Suspect]
     Active Substance: GABAPENTIN
     Indication: HYPERAESTHESIA
     Route: 048
     Dates: start: 2014
  2. OXYCODONE [Suspect]
     Active Substance: OXYCODONE
     Indication: PAIN
     Route: 048
     Dates: start: 201406
  3. LANTUS [Concomitant]
     Active Substance: INSULIN GLARGINE
  4. CYMBALTA [Concomitant]
     Active Substance: DULOXETINE HYDROCHLORIDE
  5. LISINOPRIL. [Concomitant]
     Active Substance: LISINOPRIL
  6. COREG [Concomitant]
     Active Substance: CARVEDILOL
  7. NITROGLYCERIN. [Concomitant]
     Active Substance: NITROGLYCERIN
  8. GRALISE [Suspect]
     Active Substance: GABAPENTIN
     Indication: OFF LABEL USE
     Route: 048
     Dates: start: 2014
  9. FENTANYL. [Suspect]
     Active Substance: FENTANYL
     Indication: PAIN
     Dates: start: 2014
  10. GENUINE ASPIRIN [Concomitant]
     Active Substance: ASPIRIN

REACTIONS (15)
  - Cardiac disorder [None]
  - Liver disorder [None]
  - Musculoskeletal pain [None]
  - Drug withdrawal syndrome [None]
  - Pain in extremity [None]
  - Anxiety [None]
  - Pain [None]
  - Memory impairment [None]
  - Depression [None]
  - Fall [None]
  - Restlessness [None]
  - Muscle disorder [None]
  - Paraesthesia [None]
  - Overdose [None]
  - Back pain [None]

NARRATIVE: CASE EVENT DATE: 2014
